FAERS Safety Report 24889510 (Version 2)
Quarter: 2025Q1

REPORT INFORMATION
  Report Type: Report from Study
  Country: US (occurrence: US)
  Receive Date: 20250127
  Receipt Date: 20250130
  Transmission Date: 20250409
  Serious: Yes (Other)
  Sender: AMGEN
  Company Number: US-AMGEN-USASP2025013023

PATIENT
  Age: 30 Year
  Sex: Male

DRUGS (2)
  1. KRYSTEXXA [Suspect]
     Active Substance: PEGLOTICASE
     Indication: Gouty tophus
     Dosage: 8 MILLIGRAM, Q2WK
     Route: 040
     Dates: start: 20241129
  2. KRYSTEXXA [Suspect]
     Active Substance: PEGLOTICASE
     Dosage: 8 MILLIGRAM, Q2WK
     Route: 040
     Dates: start: 20250114

REACTIONS (5)
  - Flushing [Recovered/Resolved]
  - Blood pressure abnormal [Recovered/Resolved]
  - Testicular pain [Recovered/Resolved]
  - Chest discomfort [Recovered/Resolved]
  - Blood uric acid increased [Unknown]

NARRATIVE: CASE EVENT DATE: 20250114
